FAERS Safety Report 10119513 (Version 2)
Quarter: 2014Q2

REPORT INFORMATION
  Report Type: Spontaneous
  Country: US (occurrence: US)
  Receive Date: 20140425
  Receipt Date: 20140613
  Transmission Date: 20141212
  Serious: Yes (Death)
  Sender: FDA-Public Use
  Company Number: US-JNJFOC-20140418235

PATIENT
  Sex: Male
  Weight: 81.6 kg

DRUGS (6)
  1. IMBRUVICA [Suspect]
     Indication: CHRONIC LYMPHOCYTIC LEUKAEMIA
     Route: 048
  2. ACYCLOVIR [Concomitant]
     Indication: PROPHYLAXIS
  3. AMLODIPINE [Concomitant]
     Indication: BLOOD PRESSURE
  4. PROTONIX [Concomitant]
     Indication: PROPHYLAXIS
  5. ZOCOR [Concomitant]
     Indication: BLOOD CHOLESTEROL
  6. ZOFRAN [Concomitant]
     Indication: PROPHYLAXIS OF NAUSEA AND VOMITING

REACTIONS (1)
  - Cardiac death [Fatal]
